FAERS Safety Report 4865755-0 (Version None)
Quarter: 2005Q4

REPORT INFORMATION
  Report Type: 
  Country: None (occurrence: None)
  Receive Date: 20051220
  Receipt Date: 20051205
  Transmission Date: 20060501
  Serious: Yes (Disabling)
  Sender: FDA-Public Use
  Company Number: DSA_27523_2005

PATIENT
  Age: 57 Year
  Sex: Female

DRUGS (2)
  1. ENALAPRIL MALEATE [Suspect]
     Indication: HYPERTENSION
     Dosage: 20 MG BID PO
     Route: 048
     Dates: start: 20030101, end: 20050401
  2. BENDROFLUMETHIAZIDE [Concomitant]

REACTIONS (5)
  - FATIGUE [None]
  - MALAISE [None]
  - NASOPHARYNGITIS [None]
  - NEUTROPENIA [None]
  - PALPITATIONS [None]
